FAERS Safety Report 7213647-4 (Version None)
Quarter: 2010Q4

REPORT INFORMATION
  Report Type: 
  Country: None (occurrence: None)
  Receive Date: 20101126
  Receipt Date: 20091201
  Transmission Date: 20110411
  Serious: Yes (Disabling)
  Sender: FDA-Public Use
  Company Number: WAES 0912USA00704

PATIENT
  Age: 63 Year
  Sex: Female
  Weight: 71.2147 kg

DRUGS (1)
  1. FOSAMAX [Suspect]
     Indication: OSTEOPENIA
     Dosage: 70 MG/WKY/PO
     Route: 048
     Dates: start: 19990101, end: 20061228

REACTIONS (6)
  - BONE DENSITY DECREASED [None]
  - DENTAL NECROSIS [None]
  - EXCORIATION [None]
  - EYE DISORDER [None]
  - FRACTURE [None]
  - OSTEONECROSIS [None]
